FAERS Safety Report 10370813 (Version 1)
Quarter: 2014Q3

REPORT INFORMATION
  Report Type: Spontaneous
  Country: US (occurrence: None)
  Receive Date: 20140807
  Receipt Date: 20140807
  Transmission Date: 20150326
  Serious: Yes (Hospitalization)
  Sender: FDA-Public Use
  Company Number: None

PATIENT
  Age: 84 Year
  Sex: Male
  Weight: 94.3 kg

DRUGS (24)
  1. TAMSULOSIN [Concomitant]
     Active Substance: TAMSULOSIN
  2. FOLIC ACID. [Concomitant]
     Active Substance: FOLIC ACID
  3. POLYETHYLENE GLYCOL [Concomitant]
     Active Substance: POLYETHYLENE GLYCOLS
  4. SODIUM CHLORIDE. [Concomitant]
     Active Substance: SODIUM CHLORIDE
  5. CEFAZOLIN [Concomitant]
     Active Substance: CEFAZOLIN
  6. FAMOTIDINE. [Concomitant]
     Active Substance: FAMOTIDINE
  7. WARFARIN [Concomitant]
     Active Substance: WARFARIN
  8. CELECOXIB. [Concomitant]
     Active Substance: CELECOXIB
  9. SOLU-CORTEF [Concomitant]
     Active Substance: HYDROCORTISONE SODIUM SUCCINATE
  10. OXYCODONE IR 5MG [Suspect]
     Active Substance: OXYCODONE
     Indication: BREAKTHROUGH PAIN
     Dosage: 1 TABLET  PRN/AS NEEDED  ORAL
     Route: 048
     Dates: start: 20140417, end: 20140418
  11. METFORMIN [Concomitant]
     Active Substance: METFORMIN HYDROCHLORIDE
  12. TEMAZEPAM. [Concomitant]
     Active Substance: TEMAZEPAM
  13. BISACODYL. [Concomitant]
     Active Substance: BISACODYL
  14. DOCUSATE SODIUM. [Concomitant]
     Active Substance: DOCUSATE SODIUM
  15. FERROUS SULFATE [Concomitant]
     Active Substance: FERROUS SULFATE\FERROUS SULFATE, DRIED
  16. PREGABALIN. [Concomitant]
     Active Substance: PREGABALIN
  17. MORPHINE [Concomitant]
     Active Substance: MORPHINE
  18. VANCOMYCIN [Concomitant]
     Active Substance: VANCOMYCIN
  19. OXYCODONE SR 10MG [Suspect]
     Active Substance: OXYCODONE
     Indication: PROCEDURAL PAIN
     Dosage: 1 TABLET BID ORAL
     Route: 048
     Dates: start: 20140417, end: 20140419
  20. ATORVASTATIN [Concomitant]
     Active Substance: ATORVASTATIN
  21. HYDROCODONE/APAP [Concomitant]
     Active Substance: ACETAMINOPHEN\HYDROCODONE
  22. LACTATED RINGERS [Concomitant]
     Active Substance: CALCIUM CHLORIDE\POTASSIUM CHLORIDE\SODIUM CHLORIDE\SODIUM LACTATE
  23. QUETIAPINE [Concomitant]
     Active Substance: QUETIAPINE
  24. INSULIN ASPART SLIDING SCALE [Concomitant]

REACTIONS (1)
  - Respiratory failure [None]

NARRATIVE: CASE EVENT DATE: 20140419
